FAERS Safety Report 11758245 (Version 1)
Quarter: 2015Q4

REPORT INFORMATION
  Report Type: Spontaneous
  Country: US (occurrence: None)
  Receive Date: 20151118
  Receipt Date: 20151118
  Transmission Date: 20160304
  Serious: Yes (Disabling)
  Sender: FDA-Public Use
  Company Number: None

PATIENT
  Age: 77 Year
  Sex: Female
  Weight: 81.19 kg

DRUGS (8)
  1. VITAMIN D [Concomitant]
     Active Substance: CHOLECALCIFEROL
  2. GLOUCOSAMINE/CONDROTIN [Concomitant]
  3. COUMADIN [Concomitant]
     Active Substance: WARFARIN SODIUM
  4. ESSIAC TEA [Concomitant]
  5. CARTIA XT [Suspect]
     Active Substance: DILTIAZEM HYDROCHLORIDE
     Indication: HYPERTENSION
     Route: 048
     Dates: start: 20151106, end: 20151108
  6. TRAMADOL. [Concomitant]
     Active Substance: TRAMADOL
  7. FISH OIL [Concomitant]
     Active Substance: FISH OIL
  8. DILTIAZEM HCL SA [Concomitant]

REACTIONS (6)
  - Headache [None]
  - Feeling abnormal [None]
  - Cough [None]
  - Product substitution issue [None]
  - Dyspnoea [None]
  - Influenza [None]

NARRATIVE: CASE EVENT DATE: 20151107
